FAERS Safety Report 15098697 (Version 1)
Quarter: 2018Q3

REPORT INFORMATION
  Report Type: Spontaneous
  Country: DE (occurrence: DE)
  Receive Date: 20180702
  Receipt Date: 20180702
  Transmission Date: 20181010
  Serious: Yes (Hospitalization, Other)
  Sender: FDA-Public Use
  Company Number: DE-JNJFOC-20180630754

PATIENT
  Age: 83 Year
  Sex: Male

DRUGS (16)
  1. RISPERIDONE. [Suspect]
     Active Substance: RISPERIDONE
     Indication: RESTLESSNESS
     Route: 048
     Dates: start: 20180303
  2. RAMIPRIL. [Concomitant]
     Active Substance: RAMIPRIL
     Dosage: SINCE YEARS
     Route: 048
  3. TORASEMID [Concomitant]
     Active Substance: TORSEMIDE
     Dosage: SINCE YEARS
     Route: 048
  4. RISPERIDONE. [Suspect]
     Active Substance: RISPERIDONE
     Indication: DELUSION
     Route: 048
     Dates: start: 20180303
  5. MELPERON [Interacting]
     Active Substance: MELPERONE
     Indication: RESTLESSNESS
     Route: 048
     Dates: start: 20180304, end: 20180305
  6. PANTOPRAZOL [Concomitant]
     Active Substance: PANTOPRAZOLE SODIUM
     Dosage: SINCE YEARS
     Route: 048
  7. ASPIRIN. [Concomitant]
     Active Substance: ASPIRIN
     Dosage: SINCE YEARS
     Route: 048
  8. L?THYROXIN [Concomitant]
     Active Substance: LEVOTHYROXINE SODIUM
     Dosage: SINCE YEARS
     Route: 048
  9. MELPERON [Interacting]
     Active Substance: MELPERONE
     Indication: DELUSION
     Route: 048
     Dates: start: 20180303, end: 20180303
  10. PIPAMPERONE [Concomitant]
     Active Substance: PIPAMPERONE
     Route: 048
     Dates: start: 20180302, end: 201803
  11. PIPAMPERONE [Concomitant]
     Active Substance: PIPAMPERONE
     Route: 048
     Dates: start: 20180306
  12. TARGIN [Concomitant]
     Active Substance: NALOXONE HYDROCHLORIDE\OXYCODONE HYDROCHLORIDE
     Dosage: SINCE YEARS
     Route: 048
  13. MELPERON [Interacting]
     Active Substance: MELPERONE
     Indication: RESTLESSNESS
     Route: 048
     Dates: start: 20180303, end: 20180303
  14. MOLSIDOMIN [Concomitant]
     Active Substance: MOLSIDOMINE
     Dosage: SINCE YEARS
     Route: 048
  15. MELPERON [Interacting]
     Active Substance: MELPERONE
     Indication: DELUSION
     Route: 048
     Dates: start: 20180304, end: 20180305
  16. SIMVASTATIN. [Concomitant]
     Active Substance: SIMVASTATIN
     Dosage: SINCE YEARS
     Route: 048

REACTIONS (2)
  - Pleurothotonus [Recovered/Resolved]
  - Drug interaction [Unknown]

NARRATIVE: CASE EVENT DATE: 2018
